FAERS Safety Report 9752522 (Version 1)
Quarter: 2013Q4

REPORT INFORMATION
  Report Type: Spontaneous
  Country: US (occurrence: None)
  Receive Date: 20131211
  Receipt Date: 20131211
  Transmission Date: 20140711
  Serious: Yes (Hospitalization)
  Sender: FDA-Public Use
  Company Number: None

PATIENT
  Age: 75 Year
  Sex: Female
  Weight: 50.1 kg

DRUGS (1)
  1. TOPOTECAN [Suspect]

REACTIONS (1)
  - Clostridium difficile infection [None]
